FAERS Safety Report 5878282-9 (Version None)
Quarter: 2008Q3

REPORT INFORMATION
  Report Type: 
  Country: None (occurrence: None)
  Receive Date: 20080911
  Receipt Date: 20080908
  Transmission Date: 20090109
  Serious: Yes (Life-Threatening, Hospitalization)
  Sender: FDA-Public Use
  Company Number: US-WYE-H05908808

PATIENT
  Age: 51 Year
  Sex: Male

DRUGS (2)
  1. PRISTIQ [Suspect]
     Indication: DEPRESSION
     Route: 048
     Dates: start: 20080801, end: 20080101
  2. CRESTOR [Interacting]
     Dosage: UNKNOWN
     Route: 065
     Dates: start: 20080801

REACTIONS (5)
  - BLOOD GLUCOSE INCREASED [None]
  - CARDIAC ARREST [None]
  - DRUG INTERACTION [None]
  - MALAISE [None]
  - SYNCOPE [None]
